FAERS Safety Report 4867583-9 (Version None)
Quarter: 2005Q4

REPORT INFORMATION
  Report Type: 
  Country: None (occurrence: None)
  Receive Date: 20051223
  Receipt Date: 20051223
  Transmission Date: 20060501
  Serious: Yes (Other)
  Sender: FDA-Public Use
  Company Number: None

PATIENT
  Age: 83 Year
  Sex: Male

DRUGS (10)
  1. RISPERIDONE [Suspect]
     Indication: AGITATION
     Dosage: 1 MG TWICE DAILY PO
     Route: 048
     Dates: start: 20051121, end: 20051219
  2. LEVOYHYROXINE [Concomitant]
  3. PRILOSEC [Concomitant]
  4. ALBUTEROL [Concomitant]
  5. TYLENOL [Concomitant]
  6. LORAZEPAM [Concomitant]
  7. HALOPERIDOL [Concomitant]
  8. BISACODYL [Concomitant]
  9. DSS LIQUID [Concomitant]
  10. PROCHLORPERAZINE [Concomitant]

REACTIONS (1)
  - ALOPECIA [None]
